FAERS Safety Report 6526122-7 (Version None)
Quarter: 2009Q4

REPORT INFORMATION
  Report Type: 
  Country: None (occurrence: None)
  Receive Date: 20091222
  Receipt Date: 20091215
  Transmission Date: 20100525
  Serious: Yes (Other)
  Sender: FDA-Public Use
  Company Number: GB-EBEWE-1765MTX09FU2

PATIENT
  Age: 40 Year
  Sex: Female
  Weight: 60 kg

DRUGS (8)
  1. METHOTREXATE [Suspect]
     Indication: RHEUMATOID ARTHRITIS
     Dosage: 25 MG, DAILY, SC
     Route: 058
  2. ENBREL [Suspect]
     Indication: PSORIATIC ARTHROPATHY
     Dosage: 25 MG, 2/WEEK, SC
     Route: 058
     Dates: start: 20041210
  3. CITALOPRAM HYDROBROMIDE [Concomitant]
  4. CLOPIDOGREL [Concomitant]
  5. DICLOFENAC [Concomitant]
  6. DIHYDROCODEINE BITARTRATE INJ [Concomitant]
  7. FOLIC ACID [Concomitant]
  8. HYDROXYCHLOROQUINE (FOR RHEUMATOID ARTHRITIS) [Concomitant]

REACTIONS (1)
  - GALACTORRHOEA [None]
